FAERS Safety Report 13749342 (Version 1)
Quarter: 2017Q3

REPORT INFORMATION
  Report Type: Spontaneous
  Country: US (occurrence: US)
  Receive Date: 20170713
  Receipt Date: 20170713
  Transmission Date: 20171127
  Serious: Yes (Other)
  Sender: FDA-Public Use
  Company Number: US-ENDO PHARMACEUTICALS INC-2017-003836

PATIENT
  Sex: Male
  Weight: 79.37 kg

DRUGS (8)
  1. PENTOXIFYLLINE. [Concomitant]
     Active Substance: PENTOXIFYLLINE
     Indication: PEYRONIE^S DISEASE
     Dosage: 400 MG, TID
     Route: 065
     Dates: start: 2016, end: 2017
  2. XIAFLEX [Suspect]
     Active Substance: COLLAGENASE CLOSTRIDIUM HISTOLYTICUM
     Dosage: 0.58 MG, FOURTH CYCLE FIRST INJECTION
     Route: 026
     Dates: start: 201703, end: 201703
  3. SILDENAFIL. [Concomitant]
     Active Substance: SILDENAFIL
     Indication: ERECTILE DYSFUNCTION
     Dosage: 20 MG, FIVE TABLETS PER OCCASION
     Route: 065
     Dates: start: 201605
  4. XIAFLEX [Suspect]
     Active Substance: COLLAGENASE CLOSTRIDIUM HISTOLYTICUM
     Dosage: 0.58 MG, SECOND CYCLE TWO INJECTIONS EACH
     Route: 026
     Dates: start: 2016
  5. TAMSULOSIN [Concomitant]
     Active Substance: TAMSULOSIN
     Indication: DYSURIA
     Dosage: 0.4 MG, DAILY
     Route: 065
     Dates: start: 201602
  6. XIAFLEX [Suspect]
     Active Substance: COLLAGENASE CLOSTRIDIUM HISTOLYTICUM
     Dosage: 0.58 MG, THIRD CYCLE TWO INJECTIONS EACH
     Route: 026
     Dates: start: 2017
  7. XIAFLEX [Suspect]
     Active Substance: COLLAGENASE CLOSTRIDIUM HISTOLYTICUM
     Indication: PEYRONIE^S DISEASE
     Dosage: 0.58 MG, FIRST CYCLE TWO INJECTIONS EACH
     Route: 026
     Dates: start: 2016
  8. NORTRIPTYLINE [Concomitant]
     Active Substance: NORTRIPTYLINE
     Indication: IRRITABLE BOWEL SYNDROME
     Dosage: 75 MG, UNKNOWN
     Route: 048
     Dates: start: 201512

REACTIONS (6)
  - Penile contusion [Not Recovered/Not Resolved]
  - Penile haematoma [Recovering/Resolving]
  - Vein rupture [Recovered/Resolved]
  - Genital contusion [Recovered/Resolved]
  - Penile vein thrombosis [Recovered/Resolved]
  - Penile pain [Not Recovered/Not Resolved]

NARRATIVE: CASE EVENT DATE: 2016
